FAERS Safety Report 4732418-1 (Version None)
Quarter: 2005Q3

REPORT INFORMATION
  Report Type: 
  Country: None (occurrence: None)
  Receive Date: 20050801
  Receipt Date: 20050718
  Transmission Date: 20060218
  Serious: Yes (Other)
  Sender: FDA-Public Use
  Company Number: 2005104709

PATIENT
  Sex: Male

DRUGS (3)
  1. LIPITOR [Suspect]
     Indication: ILL-DEFINED DISORDER
  2. ZOCOR [Suspect]
     Indication: ILL-DEFINED DISORDER
  3. NIACIN [Suspect]
     Indication: ILL-DEFINED DISORDER

REACTIONS (5)
  - AGITATION [None]
  - CONFUSIONAL STATE [None]
  - DISORIENTATION [None]
  - DRUG TOLERANCE DECREASED [None]
  - THROMBOTIC STROKE [None]
